FAERS Safety Report 6064324-7 (Version None)
Quarter: 2009Q1

REPORT INFORMATION
  Report Type: 
  Country: None (occurrence: None)
  Receive Date: 20090121
  Receipt Date: 20080313
  Transmission Date: 20090719
  Serious: Yes (Hospitalization)
  Sender: FDA-Public Use
  Company Number: HQWYE052326OCT04

PATIENT
  Age: 52 Year
  Sex: Female

DRUGS (2)
  1. PREMPRO [Suspect]
  2. MEDROXYPROGESTERONE [Suspect]

REACTIONS (1)
  - MYOCARDIAL INFARCTION [None]
